FAERS Safety Report 8065071-2 (Version None)
Quarter: 2012Q1

REPORT INFORMATION
  Report Type: 
  Country: None (occurrence: None)
  Receive Date: 20120124
  Receipt Date: 20120118
  Transmission Date: 20120608
  Serious: No
  Sender: FDA-Public Use
  Company Number: US-PFIZER INC-2012014694

PATIENT
  Sex: Female
  Weight: 63.492 kg

DRUGS (2)
  1. GEODON [Suspect]
     Indication: PSYCHOTIC DISORDER
  2. GEODON [Suspect]
     Indication: MANIA
     Dosage: 80 MG, 1X/DAY
     Route: 048
     Dates: start: 20110301, end: 20120111

REACTIONS (2)
  - MIDDLE INSOMNIA [None]
  - INSOMNIA [None]
